FAERS Safety Report 7164994-6 (Version None)
Quarter: 2010Q4

REPORT INFORMATION
  Report Type: 
  Country: None (occurrence: None)
  Receive Date: 20101215
  Receipt Date: 20091214
  Transmission Date: 20110411
  Serious: No
  Sender: FDA-Public Use
  Company Number: US-AMGEN-TCS380388

PATIENT

DRUGS (2)
  1. ENBREL [Suspect]
     Indication: JUVENILE ARTHRITIS
     Dosage: UNK UNK, UNK
     Dates: start: 20080901
  2. METHOTREXATE [Concomitant]
     Dosage: UNK UNK, UNK

REACTIONS (1)
  - INJECTION SITE PAIN [None]
